FAERS Safety Report 5921173-5 (Version None)
Quarter: 2008Q4

REPORT INFORMATION
  Report Type: 
  Country: None (occurrence: None)
  Receive Date: 20081016
  Receipt Date: 20081006
  Transmission Date: 20090506
  Serious: Yes (Hospitalization, Other)
  Sender: FDA-Public Use
  Company Number: US-AMGEN-QUU307705

PATIENT
  Sex: Female

DRUGS (10)
  1. ENBREL [Suspect]
     Indication: RHEUMATOID ARTHRITIS
     Route: 058
     Dates: start: 19960101
  2. HYDROCHLOROTHIAZIDE [Concomitant]
  3. FOLIC ACID [Concomitant]
  4. OSCAL [Concomitant]
  5. SYNTHROID [Concomitant]
  6. TYLENOL (CAPLET) [Concomitant]
  7. PREDNISONE TAB [Concomitant]
  8. METHOTREXATE [Concomitant]
  9. PROTONIX [Concomitant]
  10. CELEBREX [Concomitant]

REACTIONS (35)
  - ABSCESS LIMB [None]
  - ANAEMIA [None]
  - ARTHRALGIA [None]
  - ASTHENIA [None]
  - BALANCE DISORDER [None]
  - CELLULITIS [None]
  - CHRONIC OBSTRUCTIVE PULMONARY DISEASE [None]
  - COLITIS [None]
  - DEEP VEIN THROMBOSIS [None]
  - DEFORMITY [None]
  - EYE INFECTION [None]
  - FOREARM FRACTURE [None]
  - GAIT DISTURBANCE [None]
  - HYPERTENSION [None]
  - INJECTION SITE IRRITATION [None]
  - INTRACRANIAL ANEURYSM [None]
  - JOINT ABSCESS [None]
  - JOINT STIFFNESS [None]
  - JOINT SWELLING [None]
  - LUNG NEOPLASM [None]
  - MUSCULOSKELETAL STIFFNESS [None]
  - MYOPATHY [None]
  - NEUROPATHY PERIPHERAL [None]
  - OEDEMA PERIPHERAL [None]
  - OSTEOPOROSIS [None]
  - PELVIC FRACTURE [None]
  - PLEURAL EFFUSION [None]
  - PNEUMONIA [None]
  - PULMONARY EMBOLISM [None]
  - ROTATOR CUFF REPAIR [None]
  - SCOLIOSIS [None]
  - SJOGREN'S SYNDROME [None]
  - STAPHYLOCOCCAL INFECTION [None]
  - URINARY TRACT INFECTION [None]
  - VISUAL ACUITY REDUCED [None]
